FAERS Safety Report 5389690-7 (Version None)
Quarter: 2007Q3

REPORT INFORMATION
  Report Type: 
  Country: None (occurrence: None)
  Receive Date: 20070717
  Receipt Date: 20070710
  Transmission Date: 20080115
  Serious: Yes (Hospitalization)
  Sender: FDA-Public Use
  Company Number: JP-ELI_LILLY_AND_COMPANY-JP200705002954

PATIENT
  Age: 83 Year
  Sex: Female
  Weight: 51.6 kg

DRUGS (2)
  1. RALOXIFENE HYDROCHLORIDE [Suspect]
     Indication: OSTEOPOROSIS POSTMENOPAUSAL
     Dosage: 60 MG, DAILY (1/D)
     Route: 048
     Dates: start: 20050419, end: 20070211
  2. ALFAROL [Concomitant]
     Indication: OSTEOPOROSIS POSTMENOPAUSAL
     Dosage: 1 UG, AS NEEDED
     Route: 048
     Dates: start: 20050419, end: 20070211

REACTIONS (1)
  - SPINAL COMPRESSION FRACTURE [None]
